FAERS Safety Report 11219882 (Version 1)
Quarter: 2015Q2

REPORT INFORMATION
  Report Type: Spontaneous
  Country: BR (occurrence: None)
  Receive Date: 20150624
  Receipt Date: 20150624
  Transmission Date: 20150821
  Serious: Yes (Hospitalization)
  Sender: FDA-Public Use
  Company Number: BR-TORRENT-00002976

PATIENT
  Age: 9 Year
  Sex: Female

DRUGS (4)
  1. GARDENAL [Suspect]
     Active Substance: PHENOBARBITAL
  2. LAMITOR [Suspect]
     Active Substance: LAMOTRIGINE
     Indication: SEIZURE
     Route: 048
     Dates: start: 2012
  3. FRISIUM [Concomitant]
     Active Substance: CLOBAZAM
  4. AMATO [Suspect]
     Active Substance: TOPIRAMATE

REACTIONS (5)
  - Pyrexia [None]
  - Drug ineffective [None]
  - Seizure [None]
  - Nasopharyngitis [None]
  - Urinary tract infection [None]

NARRATIVE: CASE EVENT DATE: 201506
